FAERS Safety Report 20687660 (Version 2)
Quarter: 2022Q2

REPORT INFORMATION
  Report Type: Spontaneous
  Country: US (occurrence: US)
  Receive Date: 20220408
  Receipt Date: 20220422
  Transmission Date: 20220721
  Serious: No
  Sender: FDA-Public Use
  Company Number: US-TOLMAR, INC.-22US033733

PATIENT
  Age: 19 Year
  Sex: Male

DRUGS (1)
  1. FENSOLVI [Suspect]
     Active Substance: LEUPROLIDE ACETATE
     Indication: Gender dysphoria
     Dosage: 45 MILLIGRAM, Q 6 MONTH
     Route: 058
     Dates: start: 20220328

REACTIONS (1)
  - Off label use [Unknown]

NARRATIVE: CASE EVENT DATE: 20220328
